FAERS Safety Report 23055437 (Version 1)
Quarter: 2023Q4

REPORT INFORMATION
  Report Type: Spontaneous
  Country: US (occurrence: None)
  Receive Date: 20231011
  Receipt Date: 20231011
  Transmission Date: 20240110
  Serious: Yes (Hospitalization, Disabling)
  Sender: FDA-Public Use
  Company Number: None

PATIENT
  Age: 48 Year
  Sex: Female
  Weight: 108 kg

DRUGS (1)
  1. LUPRON DEPOT [Suspect]
     Active Substance: LEUPROLIDE ACETATE
     Route: 030

REACTIONS (12)
  - Injection site pain [None]
  - Injection site hypoaesthesia [None]
  - Rash [None]
  - Urticaria [None]
  - Feeling hot [None]
  - Erythema [None]
  - Migraine [None]
  - Arthralgia [None]
  - Bone pain [None]
  - Nausea [None]
  - Vomiting [None]
  - Eating disorder [None]

NARRATIVE: CASE EVENT DATE: 20150601
